FAERS Safety Report 10799229 (Version 1)
Quarter: 2015Q1

REPORT INFORMATION
  Report Type: Spontaneous
  Country: US (occurrence: US)
  Receive Date: 20150216
  Receipt Date: 20150216
  Transmission Date: 20150721
  Serious: No
  Sender: FDA-Public Use
  Company Number: US-ALLERGAN-1400129US

PATIENT
  Age: 82 Year
  Sex: Female

DRUGS (4)
  1. BLOOD PRESSURE MEDICATION [Concomitant]
     Active Substance: UNSPECIFIED INGREDIENT
     Indication: HYPERTENSION
     Dosage: UNK, QD
     Route: 048
  2. RESTASIS [Suspect]
     Active Substance: CYCLOSPORINE
     Indication: DRY EYE
     Dosage: UNK UNK, BID
     Route: 047
     Dates: start: 201311
  3. LIPITOR [Concomitant]
     Active Substance: ATORVASTATIN CALCIUM
     Indication: BLOOD CHOLESTEROL INCREASED
     Dosage: UNK, QD
     Route: 048
  4. VARIOUS OTC EYE DROPS WITHOUT PRESERVATIVE [Concomitant]
     Indication: DRY EYE
     Dosage: UNK, PRN

REACTIONS (1)
  - Vision blurred [Not Recovered/Not Resolved]
